FAERS Safety Report 6106298-6 (Version None)
Quarter: 2009Q1

REPORT INFORMATION
  Report Type: 
  Country: None (occurrence: None)
  Receive Date: 20090306
  Receipt Date: 20090303
  Transmission Date: 20090719
  Serious: Yes (Hospitalization, Other)
  Sender: FDA-Public Use
  Company Number: US-ABBOTT-09P-163-0501951-00

PATIENT
  Sex: Male
  Weight: 102.15 kg

DRUGS (2)
  1. HUMIRA [Suspect]
     Indication: CROHN'S DISEASE
     Dates: start: 20080701
  2. UNSPECIFIED MEDICAYIONS [Concomitant]
     Indication: DRUG USE FOR UNKNOWN INDICATION

REACTIONS (6)
  - HEAD INJURY [None]
  - INTERVERTEBRAL DISC OPERATION [None]
  - SPINAL CORD INJURY CERVICAL [None]
  - SPINAL FUSION SURGERY [None]
  - SURGICAL FAILURE [None]
  - WHIPLASH INJURY [None]
